FAERS Safety Report 18084611 (Version 1)
Quarter: 2020Q3

REPORT INFORMATION
  Report Type: Report from Study
  Country: US (occurrence: US)
  Receive Date: 20200729
  Receipt Date: 20200729
  Transmission Date: 20201103
  Serious: Yes (Other)
  Sender: FDA-Public Use
  Company Number: US-AUROBINDO-AUR-APL-2020-036119

PATIENT

DRUGS (1)
  1. EVOMELA [Suspect]
     Active Substance: MELPHALAN HYDROCHLORIDE
     Indication: PRIMARY AMYLOIDOSIS
     Dosage: UNK
     Route: 065

REACTIONS (34)
  - Blood creatinine increased [Recovered/Resolved]
  - Hiccups [Recovered/Resolved]
  - Hypotension [Recovered/Resolved]
  - Nausea [Not Recovered/Not Resolved]
  - White blood cell count [Recovered/Resolved]
  - Myalgia [Not Recovered/Not Resolved]
  - Cardiac arrest [Recovered/Resolved]
  - Back pain [Recovered/Resolved]
  - Blood bilirubin increased [Not Recovered/Not Resolved]
  - Dizziness [Recovered/Resolved]
  - Hyponatraemia [Not Recovered/Not Resolved]
  - Lymphocyte count [Not Recovered/Not Resolved]
  - Vomiting [Recovered/Resolved]
  - Abdominal pain [Recovered/Resolved]
  - Anaemia [Not Recovered/Not Resolved]
  - Decreased appetite [Not Recovered/Not Resolved]
  - Diarrhoea [Recovered/Resolved]
  - Stomatitis [Recovered/Resolved]
  - Dysgeusia [Not Recovered/Not Resolved]
  - Aspartate aminotransferase [Recovered/Resolved]
  - Bone pain [Recovered/Resolved]
  - Blood cholesterol increased [Not Recovered/Not Resolved]
  - Insomnia [Recovered/Resolved]
  - Hypermagnesaemia [Recovered/Resolved]
  - Hyperphosphataemia [Not Recovered/Not Resolved]
  - Hyperuricaemia [Not Recovered/Not Resolved]
  - Hypoglycaemia [Recovered/Resolved]
  - Platelet count decreased [Recovered/Resolved]
  - Dyspnoea [Recovered/Resolved]
  - Blood alkaline phosphatase [Recovered/Resolved]
  - Constipation [Recovered/Resolved]
  - Fatigue [Not Recovered/Not Resolved]
  - Hyperglycaemia [Recovered/Resolved]
  - Amylase increased [Not Recovered/Not Resolved]

NARRATIVE: CASE EVENT DATE: 20190325
